FAERS Safety Report 4323392-0 (Version None)
Quarter: 2004Q1

REPORT INFORMATION
  Report Type: 
  Country: None (occurrence: None)
  Receive Date: 20040325
  Receipt Date: 20020104
  Transmission Date: 20041129
  Serious: Yes (Hospitalization, Other)
  Sender: FDA-Public Use
  Company Number: FR-GLAXOSMITHKLINE-B0131358A

PATIENT
  Sex: Male

DRUGS (6)
  1. ZIDOVUDINE [Suspect]
     Indication: ANTIVIRAL PROPHYLAXIS
     Dosage: 5MG FOUR TIMES PER DAY
     Route: 048
     Dates: start: 20010423, end: 20010604
  2. COMBIVIR [Suspect]
     Indication: HIV INFECTION
     Dosage: 1UNIT TWICE PER DAY
     Dates: start: 20001101
  3. VIDEX [Suspect]
     Indication: HIV INFECTION
     Dosage: 400MG PER DAY
     Route: 048
     Dates: start: 20001101
  4. VIRACEPT [Suspect]
     Indication: HIV INFECTION
     Dosage: 1250MG TWICE PER DAY
     Dates: start: 20001101
  5. BACTRIM [Suspect]
  6. IRON [Concomitant]

REACTIONS (8)
  - BLOOD AMYLASE INCREASED [None]
  - BLOOD LACTIC ACID INCREASED [None]
  - BLOOD PYRUVIC ACID DECREASED [None]
  - CAFE AU LAIT SPOTS [None]
  - DEVELOPMENTAL DELAY [None]
  - DRUG EXPOSURE DURING PREGNANCY [None]
  - GLAUCOMA [None]
  - HYPOKINESIA [None]
